FAERS Safety Report 18622596 (Version 1)
Quarter: 2020Q4

REPORT INFORMATION
  Report Type: Spontaneous
  Country: JP (occurrence: JP)
  Receive Date: 20201216
  Receipt Date: 20201216
  Transmission Date: 20210114
  Serious: Yes (Other)
  Sender: FDA-Public Use
  Company Number: JP-PFIZER INC-2020490354

PATIENT
  Age: 44 Year
  Sex: Male
  Weight: 71 kg

DRUGS (2)
  1. PACLITAXEL HOSPIRA [Suspect]
     Active Substance: PACLITAXEL
     Indication: LUNG NEOPLASM MALIGNANT
     Dosage: 370 MG, DAILY
     Route: 041
     Dates: start: 20201208, end: 20201208
  2. ALOXI [Suspect]
     Active Substance: PALONOSETRON HYDROCHLORIDE
     Indication: LUNG NEOPLASM MALIGNANT
     Dosage: 0.75 MG, DAILY
     Route: 041
     Dates: start: 20201208, end: 20201208

REACTIONS (2)
  - Hypersensitivity [Recovered/Resolved]
  - Allergic reaction to excipient [Recovered/Resolved]

NARRATIVE: CASE EVENT DATE: 20201208
